FAERS Safety Report 11245977 (Version 3)
Quarter: 2015Q4

REPORT INFORMATION
  Report Type: Spontaneous
  Country: US (occurrence: US)
  Receive Date: 20150708
  Receipt Date: 20151009
  Transmission Date: 20160304
  Serious: No
  Sender: FDA-Public Use
  Company Number: US-BRISTOL-MYERS SQUIBB COMPANY-BMS-2015-044417

PATIENT
  Sex: Male
  Weight: 19 kg

DRUGS (8)
  1. COGENTIN [Concomitant]
     Active Substance: BENZTROPINE MESYLATE
     Indication: PRODUCT USED FOR UNKNOWN INDICATION
     Route: 065
  2. MELATONIN [Concomitant]
     Active Substance: MELATONIN
     Indication: PRODUCT USED FOR UNKNOWN INDICATION
     Route: 065
  3. ABILIFY [Suspect]
     Active Substance: ARIPIPRAZOLE
     Indication: ANXIETY
     Dosage: 1 ML, QD
     Route: 048
  4. RISPERIDONE. [Suspect]
     Active Substance: RISPERIDONE
     Indication: PRODUCT USED FOR UNKNOWN INDICATION
     Route: 065
  5. ABILIFY [Suspect]
     Active Substance: ARIPIPRAZOLE
     Indication: ANXIETY
     Dosage: 3 MG, BID
     Route: 048
     Dates: start: 201412, end: 201507
  6. ABILIFY [Suspect]
     Active Substance: ARIPIPRAZOLE
     Indication: DYSTONIA
  7. CLONIDINE. [Suspect]
     Active Substance: CLONIDINE
     Indication: PRODUCT USED FOR UNKNOWN INDICATION
     Route: 065
  8. ABILIFY [Suspect]
     Active Substance: ARIPIPRAZOLE
     Indication: AUTISM

REACTIONS (8)
  - Dystonia [Recovering/Resolving]
  - Drug withdrawal syndrome [Recovering/Resolving]
  - Therapeutic response unexpected [Unknown]
  - Emotional disorder [Unknown]
  - Off label use [Unknown]
  - Agitation [Unknown]
  - Irritability [Recovering/Resolving]
  - Sleep disorder [Recovering/Resolving]
